FAERS Safety Report 11790075 (Version 1)
Quarter: 2015Q4

REPORT INFORMATION
  Report Type: Spontaneous
  Country: DE (occurrence: DE)
  Receive Date: 20151201
  Receipt Date: 20151201
  Transmission Date: 20160305
  Serious: Yes (Congenital Anomaly)
  Sender: FDA-Public Use
  Company Number: GXKR2015DE005211

PATIENT

DRUGS (5)
  1. METOPROLOL [Suspect]
     Active Substance: METOPROLOL
     Indication: HYPERTENSION
     Dosage: 200 [MG/D ]/ THERAPY WAS HALTED FROM WEEK 7+0 TILL 7+5. REDUCED DOSAGE (100 MG) ONLY SHORTLY IN WEEK
     Route: 064
     Dates: start: 20141029, end: 20150401
  2. NASENSPRAY RATIOPHARM [Concomitant]
     Indication: RHINITIS
     Dosage: IN THE BEGINNING OF DECEMBER FOR ABOUT A WEEK
     Route: 064
  3. PRESINOL [Concomitant]
     Active Substance: METHYLDOPA
     Indication: HYPERTENSION
     Dosage: 500 [MG/D ]/ WITH METHYLDOPA THERAPY PULSE OF 100 BPM. THEREFORE BACK TO METOPROLOL
     Route: 064
     Dates: start: 20141217, end: 20141222
  4. FOLIO FORTE [Concomitant]
     Active Substance: FOLIC ACID\VITAMINS
     Indication: PROPHYLAXIS OF NEURAL TUBE DEFECT
     Dosage: 0.8 [MG/D ]
     Route: 064
     Dates: start: 20141029, end: 20150401
  5. MIFEGYNE [Concomitant]
     Active Substance: MIFEPRISTONE
     Indication: LABOUR INDUCTION
     Route: 064
     Dates: start: 20150331, end: 20150331

REACTIONS (3)
  - Spina bifida [Not Recovered/Not Resolved]
  - Meningomyelocele [Not Recovered/Not Resolved]
  - Arnold-Chiari malformation [Not Recovered/Not Resolved]
